FAERS Safety Report 13618143 (Version 1)
Quarter: 2017Q2

REPORT INFORMATION
  Report Type: Spontaneous
  Country: US (occurrence: US)
  Receive Date: 20170606
  Receipt Date: 20170606
  Transmission Date: 20170830
  Serious: Yes (Other)
  Sender: FDA-Public Use
  Company Number: US-BAYER-2017-105325

PATIENT
  Age: 31 Year
  Sex: Female

DRUGS (1)
  1. LEVONORGESTREL (LCS, 16?G/D, 28X30) [Suspect]
     Active Substance: LEVONORGESTREL
     Dosage: UNK
     Dates: start: 2012

REACTIONS (3)
  - Ectopic pregnancy [None]
  - Drug ineffective [None]
  - Uterine perforation [None]
